FAERS Safety Report 20803537 (Version 1)
Quarter: 2022Q2

REPORT INFORMATION
  Report Type: Other
  Country: US (occurrence: None)
  Receive Date: 20220509
  Receipt Date: 20220509
  Transmission Date: 20220721
  Serious: Yes (Hospitalization)
  Sender: FDA-Public Use
  Company Number: US-ROCHE-3088025

PATIENT
  Age: 79 Year
  Sex: Male

DRUGS (2)
  1. RITUXIMAB [Suspect]
     Active Substance: RITUXIMAB
     Indication: Chronic lymphocytic leukaemia
     Route: 041
     Dates: start: 2011, end: 2015
  2. CALQUENCE [Concomitant]
     Active Substance: ACALABRUTINIB
     Route: 048
     Dates: start: 20220216

REACTIONS (7)
  - Fatigue [Unknown]
  - Lymphadenopathy [Unknown]
  - Lymphocytosis [Unknown]
  - Large intestine infection [Unknown]
  - Haemorrhage [Unknown]
  - Anaemia [Unknown]
  - Asthenia [Unknown]

NARRATIVE: CASE EVENT DATE: 20210101
